FAERS Safety Report 12508730 (Version 1)
Quarter: 2016Q2

REPORT INFORMATION
  Report Type: Spontaneous
  Country: US (occurrence: US)
  Receive Date: 20160629
  Receipt Date: 20160629
  Transmission Date: 20160815
  Serious: No
  Sender: FDA-Public Use
  Company Number: US-ACTAVIS-2015-15598

PATIENT
  Sex: Female

DRUGS (2)
  1. DEXTROAMPHETAMINE-AMPHETAMINE (AELLC) [Suspect]
     Active Substance: DEXTROAMPHETAMINE
     Indication: ATTENTION DEFICIT/HYPERACTIVITY DISORDER
     Dosage: 25 MG, TID
     Route: 065
     Dates: start: 201504
  2. OXYCODONE AND ACETAMINOPHEN [Concomitant]
     Active Substance: ACETAMINOPHEN\OXYCODONE HYDROCHLORIDE
     Indication: BACK PAIN
     Dosage: UNK
     Route: 048

REACTIONS (7)
  - Nausea [Unknown]
  - Pyrexia [Unknown]
  - Drug interaction [Unknown]
  - Oropharyngeal pain [Unknown]
  - Drug ineffective [Unknown]
  - Throat irritation [Unknown]
  - Headache [Unknown]
